FAERS Safety Report 4893727-9 (Version None)
Quarter: 2006Q1

REPORT INFORMATION
  Report Type: 
  Country: None (occurrence: None)
  Receive Date: 20060127
  Receipt Date: 20060120
  Transmission Date: 20060701
  Serious: Yes (Hospitalization)
  Sender: FDA-Public Use
  Company Number: GB-GLAXOSMITHKLINE-B0407377A

PATIENT
  Sex: Female

DRUGS (8)
  1. AVANDAMET [Suspect]
     Indication: DRUG USE FOR UNKNOWN INDICATION
     Route: 048
     Dates: start: 20050201
  2. GLICLAZIDE [Concomitant]
  3. SIMVASTATIN [Concomitant]
  4. ASPIRIN [Concomitant]
  5. IRBESARTAN [Concomitant]
  6. SOTALOL HCL [Concomitant]
  7. AMOXAPINE [Concomitant]
  8. ATROVENT [Concomitant]

REACTIONS (6)
  - ANAEMIA [None]
  - BLOOD SODIUM DECREASED [None]
  - CARDIAC FAILURE [None]
  - DYSPNOEA [None]
  - JOINT SWELLING [None]
  - OEDEMA [None]
